FAERS Safety Report 6686266-6 (Version None)
Quarter: 2010Q2

REPORT INFORMATION
  Report Type: 
  Country: None (occurrence: None)
  Receive Date: 20100419
  Receipt Date: 20100406
  Transmission Date: 20101027
  Serious: Yes (Disabling)
  Sender: FDA-Public Use
  Company Number: AT-BAYER-201021448GPV

PATIENT
  Age: 35 Year
  Sex: Male

DRUGS (1)
  1. ULTRAVIST-370 / IOPROMID [Suspect]
     Indication: DRUG USE FOR UNKNOWN INDICATION
     Dosage: AS USED: 130 ML
     Dates: start: 20100316, end: 20100316

REACTIONS (1)
  - NASAL CONGESTION [None]
